FAERS Safety Report 9805293 (Version 2)
Quarter: 2014Q2

REPORT INFORMATION
  Report Type: Spontaneous
  Country: GB (occurrence: None)
  Receive Date: 20140106
  Receipt Date: 20140410
  Transmission Date: 20141212
  Serious: Yes (Other)
  Sender: FDA-Public Use
  Company Number: AUR-APL-2013-10741

PATIENT
  Age: 43 Year
  Sex: Male
  Weight: 77.9 kg

DRUGS (2)
  1. AMOXICILLIN (AMOXICILLIN) [Suspect]
     Indication: LOWER RESPIRATORY TRACT INFECTION
     Route: 048
     Dates: start: 20131122, end: 20131128
  2. CODEINE LINCTUS (CODEINE LINCTUS) [Concomitant]

REACTIONS (4)
  - Colitis [None]
  - Rectal haemorrhage [None]
  - Haemorrhage [None]
  - Diarrhoea [None]
